FAERS Safety Report 6006766-1 (Version None)
Quarter: 2008Q4

REPORT INFORMATION
  Report Type: 
  Country: None (occurrence: None)
  Receive Date: 20081215
  Receipt Date: 20081204
  Transmission Date: 20090506
  Serious: Yes (Hospitalization)
  Sender: FDA-Public Use
  Company Number: 2008SP024785

PATIENT
  Age: 82 Year
  Sex: Male

DRUGS (6)
  1. DIAFUSOR (GLYCERYL TRINITRATE) (GLYCERYL TRINITRATE) [Suspect]
     Indication: DRUG USE FOR UNKNOWN INDICATION
     Dosage: 5 MG; CUT
     Route: 003
  2. ROCALTROL [Suspect]
     Indication: DRUG USE FOR UNKNOWN INDICATION
     Dosage: 3 DF; QD;
  3. LEVOTHYROXINE SODIUM [Suspect]
     Indication: DRUG USE FOR UNKNOWN INDICATION
  4. TAMSULOSIN HCL [Suspect]
     Indication: DRUG USE FOR UNKNOWN INDICATION
     Dosage: 40 MG; QD;
  5. HYPERIUM (RILMENIDINE) [Suspect]
     Indication: DRUG USE FOR UNKNOWN INDICATION
     Dosage: 1 MG; QD;
  6. MONO TILDIEM LP 200 (DILTIAZEM HYDROCHLORIDE) [Suspect]
     Indication: DRUG USE FOR UNKNOWN INDICATION
     Dosage: 200 MG; QD;

REACTIONS (7)
  - DERMATITIS BULLOUS [None]
  - DERMATOSIS [None]
  - ECZEMA [None]
  - ERYSIPELAS [None]
  - PYREXIA [None]
  - RASH ERYTHEMATOUS [None]
  - TOXIC SKIN ERUPTION [None]
